FAERS Safety Report 7673394-1 (Version None)
Quarter: 2011Q3

REPORT INFORMATION
  Report Type: 
  Country: None (occurrence: None)
  Receive Date: 20110810
  Receipt Date: 20110729
  Transmission Date: 20111222
  Serious: Yes (Hospitalization)
  Sender: FDA-Public Use
  Company Number: DE-JNJFOC-20110102273

PATIENT
  Age: 67 Year
  Sex: Female
  Weight: 75 kg

DRUGS (6)
  1. HYDROXYCHLOROQUINE SULFATE [Suspect]
     Indication: RHEUMATOID ARTHRITIS
  2. BELOK ZOC [Concomitant]
     Indication: HYPERTENSION
     Route: 048
     Dates: start: 19850101
  3. GOLIMUMAB [Suspect]
     Indication: RHEUMATOID ARTHRITIS
     Route: 058
     Dates: start: 20100503
  4. LEVOTHYROXINE SODIUM [Concomitant]
     Indication: HYPERTHYROIDISM
     Route: 048
     Dates: start: 19620101
  5. BETAHISTIN [Concomitant]
     Indication: VERTIGO
     Route: 048
     Dates: start: 20050101
  6. ARAVA [Suspect]
     Indication: RHEUMATOID ARTHRITIS

REACTIONS (1)
  - PARONYCHIA [None]
